FAERS Safety Report 19603994 (Version 1)
Quarter: 2021Q3

REPORT INFORMATION
  Report Type: Spontaneous
  Country: DE (occurrence: DE)
  Receive Date: 20210723
  Receipt Date: 20210723
  Transmission Date: 20211014
  Serious: Yes (Congenital Anomaly)
  Sender: FDA-Public Use
  Company Number: DE-MYLANLABS-2021M1043750

PATIENT

DRUGS (2)
  1. NORFLOXACIN [Concomitant]
     Active Substance: NORFLOXACIN
     Indication: PYELONEPHRITIS
     Dosage: UNK
     Route: 064
     Dates: start: 20190919, end: 20190923
  2. CIPROFLOXACIN. [Suspect]
     Active Substance: CIPROFLOXACIN
     Indication: PYELONEPHRITIS
     Dosage: UNK
     Route: 064
     Dates: start: 20190930, end: 20191003

REACTIONS (4)
  - Localised oedema [Unknown]
  - Foetal exposure during pregnancy [Unknown]
  - Skeletal dysplasia [Not Recovered/Not Resolved]
  - Deformity thorax [Not Recovered/Not Resolved]
